FAERS Safety Report 19137662 (Version 3)
Quarter: 2021Q2

REPORT INFORMATION
  Report Type: Report from Study
  Country: DE (occurrence: DE)
  Receive Date: 20210415
  Receipt Date: 20210512
  Transmission Date: 20210717
  Serious: Yes (Other)
  Sender: FDA-Public Use
  Company Number: DE-SUN PHARMACEUTICAL INDUSTRIES LTD-2021RR-291285

PATIENT
  Age: 91 Year
  Sex: Male

DRUGS (14)
  1. VITAMINE B12 COMPLEX [Concomitant]
     Indication: PROPHYLAXIS
     Dosage: UNK
     Route: 048
     Dates: start: 20170629
  2. HYDROCHLOROTHIAZID [Concomitant]
     Active Substance: HYDROCHLOROTHIAZIDE
     Indication: PRE-EXISTING DISEASE
     Dosage: 12.5 MILLIGRAM, DAILY
     Route: 048
     Dates: start: 201312
  3. AMLODIPIN [Concomitant]
     Active Substance: AMLODIPINE BESYLATE
     Indication: PRE-EXISTING DISEASE
     Dosage: 5 MILLIGRAM, DAILY
     Route: 048
     Dates: start: 201312
  4. ASPIRIN. [Concomitant]
     Active Substance: ASPIRIN
     Indication: PROPHYLAXIS
     Dosage: UNK
     Route: 048
     Dates: start: 20140519
  5. SONIDEGIB [Suspect]
     Active Substance: SONIDEGIB
     Indication: BASAL CELL CARCINOMA
     Dosage: 200 MILLIGRAM, DAILY
     Route: 048
     Dates: start: 20191210, end: 20201015
  6. XARELTO [Concomitant]
     Active Substance: RIVAROXABAN
     Indication: PRE-EXISTING DISEASE
     Dosage: 15 MILLIGRAM, DAILY
     Route: 048
     Dates: start: 20160706
  7. RAMIPRIL. [Concomitant]
     Active Substance: RAMIPRIL
     Indication: PRE-EXISTING DISEASE
     Dosage: 10 MILLIGRAM, DAILY
     Route: 048
     Dates: start: 201312
  8. LIXIANA [Concomitant]
     Active Substance: EDOXABAN TOSYLATE
     Indication: PRE-EXISTING DISEASE
     Dosage: 60 MILLIGRAM, DAILY
     Route: 048
     Dates: start: 2016
  9. LOESFERRON [Concomitant]
     Indication: PROPHYLAXIS
     Dosage: DAILY
     Route: 048
     Dates: start: 2017
  10. CLOPIDOGREL [Concomitant]
     Active Substance: CLOPIDOGREL BISULFATE
     Indication: PROPHYLAXIS
     Dosage: UNK
     Route: 065
     Dates: start: 20140519
  11. MAGNESIUM [Concomitant]
     Active Substance: MAGNESIUM
     Indication: ADVERSE EVENT
     Dosage: UNK
     Route: 048
     Dates: start: 20170629
  12. METOPROLOL. [Concomitant]
     Active Substance: METOPROLOL
     Indication: PRE-EXISTING DISEASE
     Dosage: 47.5 MILLIGRAM, DAILY
     Route: 048
     Dates: start: 201312
  13. FERRUM [Concomitant]
     Active Substance: FERROUS FUMARATE
     Indication: PRE-EXISTING DISEASE
     Dosage: UNK
     Route: 065
     Dates: start: 20170112
  14. THIAMAZOL [Concomitant]
     Active Substance: METHIMAZOLE
     Indication: PRE-EXISTING DISEASE
     Dosage: 5 MILLIGRAM, DAILY
     Route: 048
     Dates: start: 2015

REACTIONS (1)
  - Neoplasm progression [Recovered/Resolved]

NARRATIVE: CASE EVENT DATE: 20210211
